FAERS Safety Report 4965317-0 (Version None)
Quarter: 2006Q2

REPORT INFORMATION
  Report Type: 
  Country: None (occurrence: None)
  Receive Date: 20060406
  Receipt Date: 20051104
  Transmission Date: 20061013
  Serious: Yes (Hospitalization, Disabling)
  Sender: FDA-Public Use
  Company Number: US-MERCK-0511USA00832

PATIENT
  Age: 60 Year
  Sex: Male
  Weight: 100 kg

DRUGS (4)
  1. VIOXX [Suspect]
     Indication: SPONDYLITIS
     Route: 048
     Dates: start: 20020801, end: 20040901
  2. LOPRESSOR [Concomitant]
     Route: 065
  3. WARFARIN [Concomitant]
     Route: 065
  4. DIGITEK [Concomitant]
     Route: 065

REACTIONS (3)
  - BACK DISORDER [None]
  - DEPRESSION [None]
  - MYOCARDIAL INFARCTION [None]
